FAERS Safety Report 6235508-X (Version None)
Quarter: 2009Q2

REPORT INFORMATION
  Report Type: 
  Country: None (occurrence: None)
  Receive Date: 20090618
  Receipt Date: 20080618
  Transmission Date: 20091009
  Serious: No
  Sender: FDA-Public Use
  Company Number: US-ASTRAZENECA-2008UW12288

PATIENT
  Age: 83 Year
  Sex: Male
  Weight: 73.5 kg

DRUGS (5)
  1. RHINOCORT [Suspect]
     Route: 045
     Dates: start: 20080529
  2. NAMENDA [Concomitant]
  3. ATENOLOL [Concomitant]
  4. NORVASC [Concomitant]
  5. LISINOPRIL [Concomitant]

REACTIONS (2)
  - EPISTAXIS [None]
  - HEADACHE [None]
